FAERS Safety Report 4538297-X (Version None)
Quarter: 2004Q4

REPORT INFORMATION
  Report Type: 
  Country: None (occurrence: None)
  Receive Date: 20041221
  Receipt Date: 20041209
  Transmission Date: 20050328
  Serious: Yes (Hospitalization)
  Sender: FDA-Public Use
  Company Number: 211005

PATIENT
  Age: 34 Year
  Sex: Male
  Weight: 80.7 kg

DRUGS (1)
  1. AVASTIN [Suspect]
     Indication: COLORECTAL CANCER METASTATIC
     Dosage: 10 MG/KG, Q2W, INTRAVENOUS
     Route: 042
     Dates: start: 20041011

REACTIONS (8)
  - CLOSTRIDIUM COLITIS [None]
  - DIARRHOEA [None]
  - ELECTROLYTE IMBALANCE [None]
  - ESCHERICHIA INFECTION [None]
  - PATHOGEN RESISTANCE [None]
  - SEPSIS [None]
  - SMALL INTESTINAL OBSTRUCTION [None]
  - STAPHYLOCOCCAL INFECTION [None]
